FAERS Safety Report 8066113-0 (Version None)
Quarter: 2012Q1

REPORT INFORMATION
  Report Type: 
  Country: None (occurrence: None)
  Receive Date: 20120124
  Receipt Date: 20120116
  Transmission Date: 20120608
  Serious: Yes (Hospitalization)
  Sender: FDA-Public Use
  Company Number: FR-ROCHE-1024601

PATIENT
  Sex: Male
  Weight: 44 kg

DRUGS (4)
  1. RITONAVIR [Suspect]
     Indication: HEPATITIS B
     Dates: start: 20111022
  2. PEGINTERFERON ALFA-2A [Suspect]
     Dosage: 691 UI/I PERMANENTLY DISCONTINUED
     Dates: start: 20111107
  3. PEGINTERFERON ALFA-2A [Suspect]
     Indication: HEPATITIS B
     Dates: start: 20111013
  4. PEGINTERFERON ALFA-2A [Suspect]
     Dosage: 691 UI/I
     Dates: start: 20111205, end: 20111222

REACTIONS (1)
  - CHOLESTASIS [None]
